FAERS Safety Report 14664073 (Version 1)
Quarter: 2018Q1

REPORT INFORMATION
  Report Type: Spontaneous
  Country: US (occurrence: US)
  Receive Date: 20180321
  Receipt Date: 20180321
  Transmission Date: 20180509
  Serious: No
  Sender: FDA-Public Use
  Company Number: US-AAA-201700196

PATIENT
  Age: 53 Year
  Sex: Female
  Weight: 50.7 kg

DRUGS (4)
  1. NETSPOT [Suspect]
     Active Substance: DOTATATE GALLIUM GA-68
     Indication: POSITRON EMISSION TOMOGRAM
     Dosage: NUMBER OF SEPARATE DOSAGES: 1
     Route: 042
     Dates: start: 20170727, end: 20170727
  2. MULTIVITAMIN [Concomitant]
     Active Substance: VITAMINS
     Indication: NUTRITIONAL SUPPLEMENTATION
     Route: 048
  3. LEVOTHYROXINE. [Concomitant]
     Active Substance: LEVOTHYROXINE
     Indication: HYPOTHYROIDISM
     Dosage: NUMBER OF SEPARATE DOSAGES: 1
     Route: 048
  4. DEXAMETHASONE. [Concomitant]
     Active Substance: DEXAMETHASONE
     Indication: RADIATION SICKNESS SYNDROME
     Dosage: NUMBER OF SEPARATE DOSAGES: 2
     Route: 048
     Dates: end: 20170802

REACTIONS (1)
  - Scan gallium abnormal [Recovered/Resolved]

NARRATIVE: CASE EVENT DATE: 20170727
